FAERS Safety Report 7136452-6 (Version None)
Quarter: 2010Q4

REPORT INFORMATION
  Report Type: 
  Country: None (occurrence: None)
  Receive Date: 20101206
  Receipt Date: 20041118
  Transmission Date: 20110411
  Serious: Yes (Death)
  Sender: FDA-Public Use
  Company Number: FR-ACTELION-A-CH2004-08162

PATIENT
  Age: 34 Year
  Sex: Male

DRUGS (4)
  1. BOSENTAN TABLET 125 MG EU [Suspect]
     Indication: PULMONARY HYPERTENSION
     Dosage: 125 MG, BID
     Route: 048
     Dates: start: 20020103, end: 20040101
  2. BOSENTAN TABLET 125 MG EU [Suspect]
     Dosage: 62.5 MG, BID
     Route: 048
     Dates: start: 20011206, end: 20020102
  3. PREVISCAN [Concomitant]
  4. DIURETICS [Concomitant]

REACTIONS (2)
  - DEATH [None]
  - PULMONARY HYPERTENSION [None]
